FAERS Safety Report 17068848 (Version 1)
Quarter: 2019Q4

REPORT INFORMATION
  Report Type: Spontaneous
  Country: US (occurrence: US)
  Receive Date: 20191124
  Receipt Date: 20191124
  Transmission Date: 20200122
  Serious: No
  Sender: FDA-Public Use
  Company Number: US-ELI_LILLY_AND_COMPANY-US201911003379

PATIENT
  Age: 58 Year
  Sex: Female

DRUGS (1)
  1. FORTEO [Suspect]
     Active Substance: TERIPARATIDE
     Indication: PRODUCT USED FOR UNKNOWN INDICATION
     Dosage: UNK UNK, UNKNOWN
     Route: 065
     Dates: start: 20191023

REACTIONS (5)
  - Eructation [Unknown]
  - Injection site bruising [Unknown]
  - Dizziness [Unknown]
  - Vertigo positional [Unknown]
  - Nausea [Unknown]

NARRATIVE: CASE EVENT DATE: 20191105
